FAERS Safety Report 4534123-3 (Version None)
Quarter: 2004Q4

REPORT INFORMATION
  Report Type: 
  Country: None (occurrence: None)
  Receive Date: 20041221
  Receipt Date: 20041221
  Transmission Date: 20050328
  Serious: Yes (Death)
  Sender: FDA-Public Use
  Company Number: None

PATIENT
  Sex: Female

DRUGS (16)
  1. TAXOTERE [Suspect]
     Indication: OESOPHAGEAL CARCINOMA
     Dosage: 25 MG/M2
     Dates: start: 20041207
  2. LEUCOVORIN [Suspect]
     Dosage: 500MG/M2
     Dates: start: 20041214
  3. OXALIPLATIN [Suspect]
  4. FUDR [Suspect]
     Dosage: 120MG/KG
  5. GLIPIZIDE [Concomitant]
  6. CLONIDINE [Concomitant]
  7. MOXI (ILLEGIBLE) [Concomitant]
  8. DECADRON [Concomitant]
  9. EMEND [Concomitant]
  10. REGLAN [Concomitant]
  11. LOMOTIL [Concomitant]
  12. NEXIUM [Concomitant]
  13. DIOVAN [Concomitant]
  14. HCT [Concomitant]
  15. ZERTEC [Concomitant]
  16. LOVENOX [Concomitant]

REACTIONS (2)
  - COMA [None]
  - MALNUTRITION [None]
